FAERS Safety Report 19609189 (Version 2)
Quarter: 2021Q3

REPORT INFORMATION
  Report Type: Spontaneous
  Country: US (occurrence: US)
  Receive Date: 20210726
  Receipt Date: 20210728
  Transmission Date: 20211014
  Serious: No
  Sender: FDA-Public Use
  Company Number: US-GLAXOSMITHKLINE-US2021154041

PATIENT
  Age: 83 Year
  Sex: Female

DRUGS (1)
  1. FLONASE ALLERGY RELIEF [Suspect]
     Active Substance: FLUTICASONE PROPIONATE
     Indication: PRODUCT USED FOR UNKNOWN INDICATION
     Dosage: UNK

REACTIONS (8)
  - Infection [Unknown]
  - Dizziness [Unknown]
  - Fall [Unknown]
  - Blood pressure increased [Unknown]
  - Illness [Unknown]
  - Product use issue [Unknown]
  - Blood urine present [Unknown]
  - Anxiety [Unknown]
